FAERS Safety Report 4266286-1 (Version None)
Quarter: 2004Q1

REPORT INFORMATION
  Report Type: 
  Country: None (occurrence: None)
  Receive Date: 20040106
  Receipt Date: 20031222
  Transmission Date: 20041129
  Serious: Yes (Hospitalization, Other)
  Sender: FDA-Public Use
  Company Number: 2002051352

PATIENT
  Age: 76 Year
  Sex: Female

DRUGS (4)
  1. GABAPENTIN [Suspect]
     Indication: PARTIAL SEIZURES
     Dosage: 900 MG (DAILY),
  2. OXCARBAZEPINE (OXCARBAZEPINE) [Suspect]
     Indication: ILL-DEFINED DISORDER
     Dosage: 1200 MG (BID)
  3. LACIDIPINE (LACIDIPINE) [Concomitant]
  4. ACETYLSALICYLIC ACID SRT [Concomitant]

REACTIONS (1)
  - ASTERIXIS [None]
